FAERS Safety Report 8833144 (Version 3)
Quarter: 2012Q4

REPORT INFORMATION
  Report Type: 
  Country: TH (occurrence: TH)
  Receive Date: 20121010
  Receipt Date: 20121030
  Transmission Date: 20130627
  Serious: Yes (Death, Life-Threatening, Hospitalization, Other)
  Sender: FDA-Public Use
  Company Number: PHHY2012TH089334

PATIENT
  Age: 50 Year
  Sex: Female

DRUGS (2)
  1. GLIVEC [Suspect]
     Indication: CHRONIC MYELOID LEUKAEMIA
     Dosage: 600 mg, (6 Tablets of 100mg daily)
     Route: 048
  2. GLIVEC [Suspect]
     Dosage: 400 mg, UNK
     Dates: start: 20120529

REACTIONS (13)
  - Tumour lysis syndrome [Fatal]
  - Metabolic acidosis [Fatal]
  - Blood urea increased [Fatal]
  - Blood creatine increased [Fatal]
  - Renin decreased [Fatal]
  - Hepatosplenomegaly [Unknown]
  - Tachycardia [Unknown]
  - White blood cell count increased [Unknown]
  - No therapeutic response [Unknown]
  - Fatigue [Unknown]
  - Dyspnoea [Unknown]
  - Pallor [Unknown]
  - Emotional distress [Unknown]
